FAERS Safety Report 15641167 (Version 1)
Quarter: 2018Q4

REPORT INFORMATION
  Report Type: Report from Study
  Country: US (occurrence: US)
  Receive Date: 20181120
  Receipt Date: 20181120
  Transmission Date: 20190205
  Serious: Yes (Hospitalization)
  Sender: FDA-Public Use
  Company Number: US-ACTELION-A-US2016-137653

PATIENT
  Age: 67 Year
  Sex: Female

DRUGS (1)
  1. UPTRAVI [Suspect]
     Active Substance: SELEXIPAG
     Indication: PULMONARY ARTERIAL HYPERTENSION
     Dosage: 1200 MCG, BID
     Route: 048
     Dates: start: 20160423

REACTIONS (4)
  - Urinary tract infection [Unknown]
  - Inappropriate schedule of product administration [Recovered/Resolved]
  - Malaise [Unknown]
  - Cystitis [Unknown]

NARRATIVE: CASE EVENT DATE: 20181022
